FAERS Safety Report 6758782-X (Version None)
Quarter: 2010Q2

REPORT INFORMATION
  Report Type: 
  Country: None (occurrence: None)
  Receive Date: 20100607
  Receipt Date: 20100527
  Transmission Date: 20101027
  Serious: Yes (Other)
  Sender: FDA-Public Use
  Company Number: GB-JNJCH-2010013355

PATIENT
  Sex: Female

DRUGS (2)
  1. NICOTINE [Suspect]
     Indication: SMOKING CESSATION THERAPY
     Route: 062
     Dates: start: 20100418, end: 20100420
  2. DRUG, UNSPECIFIED [Concomitant]
     Indication: SMOKING CESSATION THERAPY
     Route: 055

REACTIONS (3)
  - ERYTHEMA [None]
  - PRODUCT SUBSTITUTION ISSUE [None]
  - PRURITUS [None]
